FAERS Safety Report 4608126-4 (Version None)
Quarter: 2005Q2

REPORT INFORMATION
  Report Type: 
  Country: None (occurrence: None)
  Receive Date: 20050301
  Receipt Date: 20040312
  Transmission Date: 20051028
  Serious: Yes (Other)
  Sender: FDA-Public Use
  Company Number: BDI-005918

PATIENT
  Age: 46 Year
  Sex: Female
  Weight: 65 kg

DRUGS (2)
  1. ISOVUE-300 [Suspect]
     Indication: COMPUTERISED TOMOGRAM
     Dosage: 90 ML ONCE IV
     Route: 042
     Dates: start: 20040304, end: 20040304
  2. ISOVUE-300 [Suspect]
     Indication: SWELLING
     Dosage: 90 ML ONCE IV
     Route: 042
     Dates: start: 20040304, end: 20040304

REACTIONS (5)
  - OROPHARYNGEAL SWELLING [None]
  - RASH [None]
  - SPEECH DISORDER [None]
  - THROAT IRRITATION [None]
  - URTICARIA [None]
